FAERS Safety Report 4331153-1 (Version None)
Quarter: 2004Q1

REPORT INFORMATION
  Report Type: 
  Country: None (occurrence: None)
  Receive Date: 20040331
  Receipt Date: 20040324
  Transmission Date: 20041129
  Serious: Yes (Life-Threatening, Hospitalization, Other)
  Sender: FDA-Public Use
  Company Number: STA-AE-04-MTX-083

PATIENT
  Age: 70 Year
  Sex: Female

DRUGS (9)
  1. RHEUMATREX [Suspect]
     Indication: RHEUMATOID ARTHRITIS
     Dosage: 6 MG 1X PER 1 WK, ORAL
     Route: 048
     Dates: start: 20040210, end: 20040218
  2. PREDNISOLONE [Concomitant]
  3. ANALGESICS (ANALGESICS) [Concomitant]
  4. UNSPECIFIED ANTI-INFLAMMATORY AGENT  (UNSPECIFIED ANTI-INFLAMMATORY AG [Concomitant]
  5. SOLETON (ZALTOPROFEN) [Concomitant]
  6. BAYASPIRINA (ACETYLSALICYLIC ACID) [Concomitant]
  7. AMLODIPINE BESYLATE [Concomitant]
  8. MICARDIS [Concomitant]
  9. CEFOTIAM HYDROCHLORIDE [Concomitant]

REACTIONS (10)
  - ANOREXIA [None]
  - ARTHRALGIA [None]
  - BONE MARROW DEPRESSION [None]
  - DISSEMINATED INTRAVASCULAR COAGULATION [None]
  - ERYTHEMA [None]
  - SCROTAL SWELLING [None]
  - SEPSIS [None]
  - SEPTIC SHOCK [None]
  - SWELLING [None]
  - WHITE BLOOD CELL COUNT INCREASED [None]
